FAERS Safety Report 9156779 (Version 1)
Quarter: 2013Q1

REPORT INFORMATION
  Report Type: Spontaneous
  Country: US (occurrence: None)
  Receive Date: 20130308
  Receipt Date: 20130308
  Transmission Date: 20140127
  Serious: No
  Sender: FDA-Public Use
  Company Number: None

PATIENT
  Sex: Female

DRUGS (1)
  1. SUBOXONE [Suspect]
     Dosage: 8MG DAILY FILM: SUBLINGUEL
     Route: 060

REACTIONS (2)
  - Accidental overdose [None]
  - Accidental exposure to product by child [None]
